FAERS Safety Report 20175548 (Version 1)
Quarter: 2021Q4

REPORT INFORMATION
  Report Type: Spontaneous
  Country: TW (occurrence: TW)
  Receive Date: 20211213
  Receipt Date: 20211213
  Transmission Date: 20220303
  Serious: Yes (Other)
  Sender: FDA-Public Use
  Company Number: TW-Merck Healthcare KGaA-9284072

PATIENT
  Age: 57 Year
  Sex: Male
  Weight: 70 kg

DRUGS (9)
  1. ERBITUX [Suspect]
     Active Substance: CETUXIMAB
     Indication: Lip and/or oral cavity cancer
     Dosage: 800 MG, UNK
     Route: 041
     Dates: start: 20180302
  2. ERBITUX [Suspect]
     Active Substance: CETUXIMAB
     Dosage: 700 MG, UNK
     Route: 041
     Dates: start: 20181212, end: 20190222
  3. CISPLATIN [Concomitant]
     Active Substance: CISPLATIN
     Indication: Lip and/or oral cavity cancer
     Dosage: 105 MG, UNK
     Route: 065
     Dates: start: 20180302, end: 2018
  4. CISPLATIN [Concomitant]
     Active Substance: CISPLATIN
     Dosage: 105 MG, UNK
     Route: 065
     Dates: start: 20180608
  5. FLUOROURACIL [Concomitant]
     Active Substance: FLUOROURACIL
     Indication: Lip and/or oral cavity cancer
     Dosage: 1608 MG, UNK
     Dates: start: 20180302, end: 2018
  6. FLUOROURACIL [Concomitant]
     Active Substance: FLUOROURACIL
     Dosage: 1090 MG, UNKNOWN
     Dates: start: 20180724, end: 20181108
  7. FLUOROURACIL [Concomitant]
     Active Substance: FLUOROURACIL
     Dosage: 1050-1065 UNK
     Dates: start: 20181212, end: 20190222
  8. CARBOPLATIN [Concomitant]
     Active Substance: CARBOPLATIN
     Indication: Lip and/or oral cavity cancer
     Dosage: 143-155 MG, UNKNOWN
     Dates: start: 20180724, end: 20181108
  9. CARBOPLATIN [Concomitant]
     Active Substance: CARBOPLATIN
     Dosage: 158-167 UNK
     Dates: start: 20181212, end: 20190222

REACTIONS (12)
  - Nephropathy toxic [Unknown]
  - Neuropathy peripheral [Unknown]
  - Anaemia [Unknown]
  - Alopecia [Unknown]
  - Neutropenia [Unknown]
  - Leukopenia [Unknown]
  - Nausea [Unknown]
  - Vomiting [Unknown]
  - Decreased appetite [Unknown]
  - Stomatitis [Unknown]
  - Fatigue [Unknown]
  - Malaise [Unknown]

NARRATIVE: CASE EVENT DATE: 20180101
